FAERS Safety Report 9169856 (Version 2)
Quarter: 2013Q2

REPORT INFORMATION
  Report Type: Spontaneous
  Country: US (occurrence: US)
  Receive Date: 20130319
  Receipt Date: 20130516
  Transmission Date: 20140414
  Serious: Yes (Other)
  Sender: FDA-Public Use
  Company Number: US-PAR PHARMACEUTICAL, INC-2013SCPR005818

PATIENT
  Sex: 0

DRUGS (2)
  1. MEGACE ES [Suspect]
     Indication: APPETITE DISORDER
     Dosage: 625 MG, ONCE A DAY
     Route: 048
     Dates: end: 20130306
  2. AMLODIPINE [Concomitant]
     Indication: PRODUCT USED FOR UNKNOWN INDICATION
     Dosage: UNK, UNKNOWN
     Route: 065

REACTIONS (3)
  - Vaginal haemorrhage [Recovering/Resolving]
  - Pulmonary embolism [Recovering/Resolving]
  - Local swelling [Recovered/Resolved]
